FAERS Safety Report 6838699-2 (Version None)
Quarter: 2010Q3

REPORT INFORMATION
  Report Type: 
  Country: None (occurrence: None)
  Receive Date: 20100713
  Receipt Date: 20070615
  Transmission Date: 20110219
  Serious: No
  Sender: FDA-Public Use
  Company Number: US-PFIZER INC-2007038863

PATIENT
  Sex: Male
  Weight: 56.7 kg

DRUGS (4)
  1. CHANTIX [Suspect]
     Indication: SMOKING CESSATION THERAPY
     Dates: start: 20070508
  2. ADVAIR DISKUS 100/50 [Concomitant]
  3. TERAZOSIN HCL [Concomitant]
     Indication: PROSTATOMEGALY
  4. FINASTERIDE [Concomitant]
     Indication: PROSTATOMEGALY

REACTIONS (1)
  - EPISTAXIS [None]
